FAERS Safety Report 5320331-0 (Version None)
Quarter: 2007Q1

REPORT INFORMATION
  Report Type: 
  Country: None (occurrence: None)
  Receive Date: 20070215
  Receipt Date: 20060913
  Transmission Date: 20070707
  Serious: Yes (Other)
  Sender: FDA-Public Use
  Company Number: MC200600636

PATIENT
  Age: 50 Year
  Sex: Male
  Weight: 84.6 kg

DRUGS (6)
  1. ANGIOMAX [Suspect]
     Indication: PERCUTANEOUS CORONARY INTERVENTION
     Dosage: SEE IMAGE
     Route: 042
     Dates: start: 20060912, end: 20060912
  2. ANGIOMAX [Suspect]
     Indication: PERCUTANEOUS CORONARY INTERVENTION
     Dosage: SEE IMAGE
     Route: 042
     Dates: start: 20060912, end: 20060912
  3. CONTRAST MEDIA (CONTAST MEDIA) [Suspect]
     Indication: PERCUTANEOUS CORONARY INTERVENTION
     Dates: start: 20060912, end: 20060912
  4. PLAVIX (CLOPIDOGREL SULPHATE) [Concomitant]
  5. ASPIRIN [Concomitant]
  6. ZOCOR [Concomitant]

REACTIONS (2)
  - BLOOD PRESSURE DECREASED [None]
  - HYPERSENSITIVITY [None]
